FAERS Safety Report 13682455 (Version 1)
Quarter: 2017Q2

REPORT INFORMATION
  Report Type: Spontaneous
  Country: CN (occurrence: CN)
  Receive Date: 20170623
  Receipt Date: 20170623
  Transmission Date: 20170830
  Serious: Yes (Other)
  Sender: FDA-Public Use
  Company Number: CN-BAXTER-2017BAX025215

PATIENT
  Age: 63 Year
  Sex: Female
  Weight: 61 kg

DRUGS (4)
  1. 20% MANNITOL INJECTION [Suspect]
     Active Substance: MANNITOL
     Indication: BRAIN CONTUSION
  2. 0.9% SODIUM CHLORIDE INJECTION [Suspect]
     Active Substance: SODIUM CHLORIDE
     Indication: MEDICATION DILUTION
     Dosage: DILUENT FOR XINGNAOJING
     Route: 041
     Dates: start: 20170319, end: 20170321
  3. 20% MANNITOL INJECTION [Suspect]
     Active Substance: MANNITOL
     Indication: TRAUMATIC HAEMORRHAGE
  4. 20% MANNITOL INJECTION [Suspect]
     Active Substance: MANNITOL
     Indication: SUBARACHNOID HAEMORRHAGE
     Route: 041
     Dates: start: 20170319, end: 20170321

REACTIONS (4)
  - Rash generalised [Recovered/Resolved]
  - Pruritus [Recovered/Resolved]
  - Skin exfoliation [Recovered/Resolved]
  - Rash erythematous [Recovered/Resolved]

NARRATIVE: CASE EVENT DATE: 20170320
